FAERS Safety Report 6339883-7 (Version None)
Quarter: 2009Q3

REPORT INFORMATION
  Report Type: 
  Country: None (occurrence: None)
  Receive Date: 20090903
  Receipt Date: 20090901
  Transmission Date: 20100115
  Serious: No
  Sender: FDA-Public Use
  Company Number: CH-EISAI INC.-E2080-00201-SPO-CH

PATIENT
  Age: 3 Year
  Sex: Male
  Weight: 14 kg

DRUGS (4)
  1. INOVELON [Suspect]
     Route: 048
     Dates: start: 20090401
  2. TOPAMAX [Concomitant]
  3. PHENOBARBITAL [Concomitant]
  4. COTRIM [Concomitant]
     Indication: URINARY TRACT INFECTION

REACTIONS (1)
  - HYPERHIDROSIS [None]
